FAERS Safety Report 7632432-2 (Version None)
Quarter: 2011Q3

REPORT INFORMATION
  Report Type: 
  Country: None (occurrence: None)
  Receive Date: 20110725
  Receipt Date: 20101005
  Transmission Date: 20111222
  Serious: No
  Sender: FDA-Public Use
  Company Number: US-BRISTOL-MYERS SQUIBB COMPANY-15271786

PATIENT
  Age: 69 Year
  Sex: Male

DRUGS (7)
  1. ASPIRIN [Concomitant]
  2. SIMVASTATIN [Concomitant]
  3. METOPROLOL TARTRATE [Concomitant]
  4. COUMADIN [Suspect]
     Dosage: 1DF=10MG 3TIMES/WK AND 7.5MG 1DAY/WK.CHANGED THE DOSE 7.5MG 3TIMES/WK AND 10MG 4TIMES/WK.INTRPT 1DAY
     Dates: start: 20100401
  5. PRIMIDONE [Concomitant]
  6. ULORIC [Concomitant]
  7. PREDNISONE [Concomitant]

REACTIONS (2)
  - INTERNATIONAL NORMALISED RATIO FLUCTUATION [None]
  - OEDEMA PERIPHERAL [None]
